FAERS Safety Report 10228781 (Version 2)
Quarter: 2014Q2

REPORT INFORMATION
  Report Type: Spontaneous
  Country: JP (occurrence: JP)
  Receive Date: 20140610
  Receipt Date: 20140613
  Transmission Date: 20141212
  Serious: Yes (Other)
  Sender: FDA-Public Use
  Company Number: JP-PFIZER INC-2014154743

PATIENT
  Age: 90 Year
  Sex: Male

DRUGS (6)
  1. LYRICA [Suspect]
     Indication: PAIN
     Dosage: 75 MG, 2X/DAY
     Route: 048
  2. LYRICA [Suspect]
     Dosage: 75 MG, 1X/DAY
     Route: 048
  3. TRAMAL [Concomitant]
     Indication: PAIN
     Dosage: 25 MG, 4X/DAY
     Dates: start: 201402
  4. TRAMAL [Concomitant]
     Dosage: 25 MG, 1X/DAY
  5. THEODUR ^ELAN^ [Concomitant]
     Dosage: UNK
  6. NAUZELIN [Concomitant]
     Dosage: UNK

REACTIONS (7)
  - Muscular weakness [Unknown]
  - Abasia [Unknown]
  - Dehydration [Unknown]
  - Hypersomnia [Unknown]
  - Drug withdrawal syndrome [Unknown]
  - Drug effect incomplete [Unknown]
  - Malaise [Unknown]
